FAERS Safety Report 26005960 (Version 1)
Quarter: 2025Q4

REPORT INFORMATION
  Report Type: Spontaneous
  Country: CH (occurrence: CH)
  Receive Date: 20251106
  Receipt Date: 20251106
  Transmission Date: 20260118
  Serious: Yes (Death, Hospitalization, Other)
  Sender: CHEPLAPHARM
  Company Number: None

PATIENT
  Age: 74 Year
  Sex: Female
  Weight: 80.199 kg

DRUGS (18)
  1. CAPECITABINE [Suspect]
     Active Substance: CAPECITABINE
     Indication: Intraductal papillary mucinous neoplasm
     Dates: start: 202504
  2. CAPECITABINE [Suspect]
     Active Substance: CAPECITABINE
     Indication: Intraductal papillary mucinous neoplasm
     Dosage: 1-0-1-0 ?DAILY DOSE: 2000 MILLIGRAM
     Route: 048
     Dates: start: 20250506, end: 20250615
  3. GEMCITABINE [Suspect]
     Active Substance: GEMCITABINE
     Indication: Intraductal papillary mucinous neoplasm
     Dates: start: 202504
  4. GEMCITABINE [Suspect]
     Active Substance: GEMCITABINE
     Indication: Intraductal papillary mucinous neoplasm
     Route: 042
     Dates: start: 20250506, end: 20250506
  5. GEMCITABINE [Suspect]
     Active Substance: GEMCITABINE
     Indication: Intraductal papillary mucinous neoplasm
     Route: 042
     Dates: start: 20250508, end: 20250508
  6. GEMCITABINE [Suspect]
     Active Substance: GEMCITABINE
     Indication: Intraductal papillary mucinous neoplasm
     Route: 042
     Dates: start: 20250530, end: 20250530
  7. GEMCITABINE [Suspect]
     Active Substance: GEMCITABINE
     Indication: Intraductal papillary mucinous neoplasm
     Route: 042
     Dates: start: 20250610, end: 20250610
  8. CALCIUM\CHOLECALCIFEROL [Concomitant]
     Active Substance: CALCIUM\CHOLECALCIFEROL
  9. RAMIPRIL [Concomitant]
     Active Substance: RAMIPRIL
  10. Folic acid powder [Concomitant]
  11. MELATONIN [Concomitant]
     Active Substance: MELATONIN
  12. TORSEMIDE [Concomitant]
     Active Substance: TORSEMIDE
  13. PANTOPRAZOLE SODIUM [Concomitant]
     Active Substance: PANTOPRAZOLE SODIUM
  14. CREON [Concomitant]
     Active Substance: PANCRELIPASE AMYLASE\PANCRELIPASE LIPASE\PANCRELIPASE PROTEASE
  15. LATANOPROST [Concomitant]
     Active Substance: LATANOPROST
  16. NOVORAPID [Concomitant]
     Active Substance: INSULIN ASPART
  17. Insuline detemir [Concomitant]
  18. FRAGMIN [Concomitant]
     Active Substance: DALTEPARIN SODIUM

REACTIONS (8)
  - Thrombotic microangiopathy [Fatal]
  - Capillary leak syndrome [Fatal]
  - Diarrhoea [Recovering/Resolving]
  - Decreased appetite [Unknown]
  - General physical health deterioration [Unknown]
  - Hepatic enzyme increased [Unknown]
  - Status epilepticus [Unknown]
  - Peritonitis [Unknown]

NARRATIVE: CASE EVENT DATE: 20250616
